FAERS Safety Report 15318752 (Version 1)
Quarter: 2018Q3

REPORT INFORMATION
  Report Type: Spontaneous
  Country: TH (occurrence: TH)
  Receive Date: 20180818
  Receipt Date: 20180818
  Transmission Date: 20181010
  Serious: Yes (Other)
  Sender: FDA-Public Use
  Company Number: None

PATIENT
  Age: 29 Year
  Sex: Female
  Weight: 49 kg

DRUGS (1)
  1. ELIDEL [Suspect]
     Active Substance: PIMECROLIMUS

REACTIONS (10)
  - Skin erosion [None]
  - Sleep disorder due to general medical condition, insomnia type [None]
  - Skin disorder [None]
  - Pruritus [None]
  - Malaise [None]
  - Emotional disorder [None]
  - Skin exfoliation [None]
  - Skin haemorrhage [None]
  - Skin weeping [None]
  - Anger [None]

NARRATIVE: CASE EVENT DATE: 20151125
